FAERS Safety Report 5752679-X (Version None)
Quarter: 2008Q2

REPORT INFORMATION
  Report Type: 
  Country: None (occurrence: None)
  Receive Date: 20080527
  Receipt Date: 20080527
  Transmission Date: 20081010
  Serious: Yes (Other)
  Sender: FDA-Public Use
  Company Number: None

PATIENT
  Age: 23 Year
  Sex: Male
  Weight: 80 kg

DRUGS (1)
  1. QUELICIN [Suspect]
     Indication: ENDOTRACHEAL INTUBATION
     Dosage: 2 MG PER KG ONCE IV BOLUS
     Route: 040
     Dates: start: 20080520, end: 20080520

REACTIONS (1)
  - DRUG EFFECT DECREASED [None]
